FAERS Safety Report 6501308-6 (Version None)
Quarter: 2009Q4

REPORT INFORMATION
  Report Type: 
  Country: None (occurrence: None)
  Receive Date: 20091216
  Receipt Date: 20091208
  Transmission Date: 20100525
  Serious: Yes (Other)
  Sender: FDA-Public Use
  Company Number: US-ASTRAZENECA-2009SE31122

PATIENT
  Age: 64 Year
  Sex: Female
  Weight: 73.5 kg

DRUGS (1)
  1. CRESTOR [Suspect]
     Route: 048

REACTIONS (3)
  - HIP ARTHROPLASTY [None]
  - SURGERY [None]
  - WRIST FRACTURE [None]
